FAERS Safety Report 21342301 (Version 1)
Quarter: 2022Q3

REPORT INFORMATION
  Report Type: Spontaneous
  Country: JP (occurrence: JP)
  Receive Date: 20220916
  Receipt Date: 20220916
  Transmission Date: 20221026
  Serious: Yes (Life-Threatening, Hospitalization)
  Sender: FDA-Public Use
  Company Number: JP-MYLANLABS-2022M1092588

PATIENT
  Age: 40 Year
  Sex: Female

DRUGS (1)
  1. MESALAMINE [Suspect]
     Active Substance: MESALAMINE
     Indication: Colitis ulcerative
     Route: 048

REACTIONS (3)
  - Systemic lupus erythematosus [Recovered/Resolved]
  - Lupus myocarditis [Recovered/Resolved]
  - Lupus-like syndrome [Recovered/Resolved]
